FAERS Safety Report 21054402 (Version 2)
Quarter: 2022Q3

REPORT INFORMATION
  Report Type: Report from Study
  Country: CN (occurrence: CN)
  Receive Date: 20220707
  Receipt Date: 20220810
  Transmission Date: 20221026
  Serious: Yes (Hospitalization, Other)
  Sender: FDA-Public Use
  Company Number: CN-BRISTOL-MYERS SQUIBB COMPANY-2022-065605

PATIENT
  Age: 66 Year
  Sex: Male

DRUGS (1)
  1. OPDIVO [Suspect]
     Active Substance: NIVOLUMAB
     Indication: Gastric cancer
     Dosage: FREQUENCY: Q3W (EVERY 3 WEEKS)
     Route: 041
     Dates: start: 20220520

REACTIONS (4)
  - Platelet count decreased [Recovered/Resolved]
  - Cholecystitis [Unknown]
  - Fatigue [Unknown]
  - Off label use [Unknown]
